FAERS Safety Report 10085576 (Version 1)
Quarter: 2014Q2

REPORT INFORMATION
  Report Type: Spontaneous
  Country: PH (occurrence: PH)
  Receive Date: 20140418
  Receipt Date: 20140418
  Transmission Date: 20141212
  Serious: Yes (Death, Other)
  Sender: FDA-Public Use
  Company Number: PH-009507513-1404PHL009786

PATIENT
  Age: 60 Year
  Sex: Male

DRUGS (1)
  1. COZAAR [Suspect]
     Dosage: ONE TABLET, ONCE A DAY

REACTIONS (3)
  - Pyrexia [Fatal]
  - Cerebrovascular accident [Unknown]
  - Dialysis [Unknown]
